FAERS Safety Report 4340174-4 (Version None)
Quarter: 2004Q1

REPORT INFORMATION
  Report Type: 
  Country: None (occurrence: None)
  Receive Date: 20040329
  Receipt Date: 20040202
  Transmission Date: 20041129
  Serious: No
  Sender: FDA-Public Use
  Company Number: 04P-163-0249041-00

PATIENT
  Age: 61 Year
  Sex: Female

DRUGS (14)
  1. HUMIRA [Suspect]
     Indication: RHEUMATOID ARTHRITIS
     Dosage: 40 MG, 1 IN 2 WK, SUBCUTANEOUS
     Route: 058
     Dates: start: 20030115
  2. TOCOPHEROL CONCENTRATE CAP [Concomitant]
  3. ASCORBIC ACID [Concomitant]
  4. GLUCOSAMINE W/CHONDROITIN SULFATES [Concomitant]
  5. SELENIUM TRACE METAL ADDITIVE [Concomitant]
  6. MORPHINE [Concomitant]
  7. AZATHIOPRINE [Concomitant]
  8. PREDNISONE [Concomitant]
  9. LEVOTHYROXINE SODIUM [Concomitant]
  10. CLOPIDOGREL BISULFATE [Concomitant]
  11. METOPROLOL SUCCINATE [Concomitant]
  12. MULTI-VITAMINS [Concomitant]
  13. ACETAMINOPHEN [Concomitant]
  14. ASPIRIN [Concomitant]

REACTIONS (2)
  - ASTHENOPIA [None]
  - SKIN WRINKLING [None]
